FAERS Safety Report 6056367-4 (Version None)
Quarter: 2009Q1

REPORT INFORMATION
  Report Type: 
  Country: None (occurrence: None)
  Receive Date: 20090129
  Receipt Date: 20090119
  Transmission Date: 20090719
  Serious: Yes (Hospitalization)
  Sender: FDA-Public Use
  Company Number: GR-WATSON-2009-00265

PATIENT
  Age: 36 Year
  Sex: Male

DRUGS (3)
  1. MONODOX [Suspect]
     Indication: PNEUMONIA
     Dosage: UNK
     Dates: start: 20080101, end: 20080101
  2. CEPHALOSPORIN C [Suspect]
     Indication: PNEUMONIA
     Dosage: UNK
     Dates: start: 20080101, end: 20080101
  3. CINOLONE [Suspect]
     Indication: PNEUMONIA

REACTIONS (1)
  - JARISCH-HERXHEIMER REACTION [None]
